FAERS Safety Report 6402307-5 (Version None)
Quarter: 2009Q4

REPORT INFORMATION
  Report Type: 
  Country: None (occurrence: None)
  Receive Date: 20091015
  Receipt Date: 20091013
  Transmission Date: 20100525
  Serious: Yes (Death, Hospitalization, Other)
  Sender: FDA-Public Use
  Company Number: PHEH2009US13419

PATIENT
  Sex: Male

DRUGS (2)
  1. GLEEVEC [Suspect]
     Indication: GASTROINTESTINAL STROMAL TUMOUR
     Dosage: 400 MG, QD
     Route: 048
     Dates: start: 20060501
  2. GLEEVEC [Suspect]
     Indication: METASTASES TO LIVER

REACTIONS (20)
  - BACK PAIN [None]
  - BLADDER CANCER [None]
  - FALL [None]
  - GASTRECTOMY [None]
  - HYPOPHAGIA [None]
  - INFECTION [None]
  - INTERVERTEBRAL DISC DEGENERATION [None]
  - KIDNEY INFECTION [None]
  - KLEBSIELLA INFECTION [None]
  - MALNUTRITION [None]
  - NEPHRECTOMY [None]
  - PLEURAL EFFUSION [None]
  - PNEUMOTHORAX [None]
  - RENAL ABSCESS [None]
  - RENAL FAILURE CHRONIC [None]
  - RENAL OSTEODYSTROPHY [None]
  - RESPIRATORY ARREST [None]
  - RESPIRATORY FAILURE [None]
  - SPINAL COLUMN INJURY [None]
  - VERTEBROPLASTY [None]
